FAERS Safety Report 25351746 (Version 1)
Quarter: 2025Q2

REPORT INFORMATION
  Report Type: Other
  Country: GB (occurrence: GB)
  Receive Date: 20250523
  Receipt Date: 20250523
  Transmission Date: 20250717
  Serious: Yes (Life-Threatening, Other)
  Sender: B BRAUN
  Company Number: GB-B.Braun Medical Inc.-2177282

PATIENT
  Age: 60 Year
  Sex: Female

DRUGS (1)
  1. ACETAMINOPHEN [Suspect]
     Active Substance: ACETAMINOPHEN
     Indication: Suicide attempt

REACTIONS (2)
  - Renal failure [Unknown]
  - Intentional overdose [Unknown]
